FAERS Safety Report 8773167 (Version 2)
Quarter: 2013Q2

REPORT INFORMATION
  Report Type: Spontaneous
  Country: GB (occurrence: GB)
  Receive Date: 20120907
  Receipt Date: 20130411
  Transmission Date: 20140414
  Serious: Yes (Life-Threatening, Hospitalization, Other)
  Sender: FDA-Public Use
  Company Number: GB-ROCHE-1115587

PATIENT
  Age: 30 Year
  Sex: Female
  Weight: 67.06 kg

DRUGS (6)
  1. XOLAIR [Suspect]
     Indication: ASTHMA
     Route: 058
     Dates: start: 2008
  2. BRICANYL [Concomitant]
     Route: 065
     Dates: start: 2002
  3. PREDNISOLONE [Concomitant]
  4. SERETIDE [Concomitant]
  5. SINGULAIR [Concomitant]
  6. NEBS [Concomitant]

REACTIONS (3)
  - Asthma [Recovered/Resolved]
  - Premature delivery [Unknown]
  - Maternal exposure during pregnancy [Unknown]
